FAERS Safety Report 9103580 (Version 4)
Quarter: 2013Q2

REPORT INFORMATION
  Report Type: Spontaneous
  Country: JP (occurrence: JP)
  Receive Date: 20130218
  Receipt Date: 20130423
  Transmission Date: 20140414
  Serious: Yes (Hospitalization)
  Sender: FDA-Public Use
  Company Number: JP-GLAXOSMITHKLINE-B0867329A

PATIENT
  Age: 71 Year
  Sex: Male

DRUGS (6)
  1. SERETIDE (50MCG/250MCG) [Suspect]
     Indication: ASTHMA
     Dosage: 250MCG TWICE PER DAY
     Route: 055
     Dates: start: 20081216, end: 20120731
  2. SINGULAIR [Concomitant]
     Indication: ASTHMA
     Dosage: 10MG PER DAY
     Route: 048
     Dates: start: 20081216
  3. MUCOSOLATE L [Concomitant]
     Indication: ASTHMA
     Dosage: 15MG TWICE PER DAY
     Route: 048
     Dates: start: 20090824
  4. MUCODYNE [Concomitant]
     Indication: ASTHMA
     Dosage: 500MG TWICE PER DAY
     Route: 048
     Dates: start: 20090615
  5. SEFTAC [Concomitant]
     Indication: GASTRITIS
     Dosage: 50MG TWICE PER DAY
     Route: 048
     Dates: start: 20090824
  6. SYMBICORT [Concomitant]
     Indication: ASTHMA
     Dosage: 2IUAX TWICE PER DAY
     Route: 055
     Dates: start: 20120801, end: 20120917

REACTIONS (7)
  - Compression fracture [Recovered/Resolved]
  - Osteoporosis [Recovering/Resolving]
  - Pathological fracture [Unknown]
  - Fall [Unknown]
  - Contusion [Unknown]
  - Back pain [Unknown]
  - Mobility decreased [Unknown]
